FAERS Safety Report 11924503 (Version 1)
Quarter: 2016Q1

REPORT INFORMATION
  Report Type: Report from Study
  Country: NL (occurrence: NL)
  Receive Date: 20160118
  Receipt Date: 20160118
  Transmission Date: 20160526
  Serious: Yes (Hospitalization, Other)
  Sender: FDA-Public Use
  Company Number: NL-AMGEN-NLDSL2016003214

PATIENT
  Age: 72 Year
  Sex: Female

DRUGS (14)
  1. ALGELDRAAT [Concomitant]
     Dosage: 40/20 MG/ML 300 ML, UNK
     Route: 048
     Dates: start: 20141215, end: 20160107
  2. FUROSEMIDE. [Concomitant]
     Active Substance: FUROSEMIDE
     Dosage: 10 MG/ML, UNK
     Dates: start: 20160110, end: 20160110
  3. OMEPRAZOLE. [Concomitant]
     Active Substance: OMEPRAZOLE
     Dosage: 40 MG, QD
     Route: 048
     Dates: start: 20160108, end: 20160110
  4. CAPECITABINE. [Concomitant]
     Active Substance: CAPECITABINE
     Dosage: 50 MG, QD
     Route: 048
     Dates: start: 20150715, end: 20160107
  5. XGEVA [Suspect]
     Active Substance: DENOSUMAB
     Indication: PRODUCT USED FOR UNKNOWN INDICATION
     Dosage: 120 MG, Q4WK
     Route: 058
     Dates: start: 20121105, end: 20150110
  6. TAMOXIFEN [Concomitant]
     Active Substance: TAMOXIFEN
  7. METOCLOPRAMIDE. [Concomitant]
     Active Substance: METOCLOPRAMIDE
     Dosage: 10 MG, QD
     Route: 048
     Dates: start: 20141205, end: 20160107
  8. OXYCODONE [Concomitant]
     Active Substance: OXYCODONE
     Dosage: 10 MG, QD
     Route: 048
     Dates: start: 20160107, end: 20160110
  9. DOMPERIDONE [Concomitant]
     Active Substance: DOMPERIDONE
     Dosage: 10 MG, QD
     Dates: start: 20160108, end: 20160110
  10. SALBUTAMOL [Concomitant]
     Active Substance: ALBUTEROL
     Dosage: 100 MUG, QD
     Route: 055
     Dates: start: 20160107, end: 20160110
  11. MACROGOL [Concomitant]
     Active Substance: POLYETHYLENE GLYCOLS
     Dosage: UNK
     Dates: start: 20160107, end: 20160110
  12. LOPERAMIDE [Concomitant]
     Active Substance: LOPERAMIDE
     Dosage: 2 MG, QD
     Route: 048
     Dates: start: 20150304, end: 20160107
  13. OXAZEPAM. [Concomitant]
     Active Substance: OXAZEPAM
     Dosage: 10 MG, QD
     Route: 048
     Dates: start: 20160108, end: 20160110
  14. DALTEPARINE SODIQUE [Concomitant]
     Dosage: 0.2 ML, QD
     Dates: start: 20160107, end: 20160110

REACTIONS (11)
  - Escherichia urinary tract infection [Unknown]
  - Apathy [Not Recovered/Not Resolved]
  - Malignant neoplasm progression [Unknown]
  - Fear [Unknown]
  - Ascites [Unknown]
  - Pleural effusion [Unknown]
  - Terminal state [Unknown]
  - Restlessness [Not Recovered/Not Resolved]
  - Condition aggravated [Not Recovered/Not Resolved]
  - Haemorrhoids [Unknown]
  - Clostridium difficile infection [Unknown]

NARRATIVE: CASE EVENT DATE: 20130801
